FAERS Safety Report 9332916 (Version 2)
Quarter: 2013Q2

REPORT INFORMATION
  Report Type: Spontaneous
  Country: TR (occurrence: None)
  Receive Date: 20130603
  Receipt Date: 20130618
  Transmission Date: 20140414
  Serious: Yes (Hospitalization, Other)
  Sender: FDA-Public Use
  Company Number: 2013P1006409

PATIENT
  Age: 1 Year
  Sex: Male

DRUGS (1)
  1. AMIKACIN [Suspect]
     Dosage: 111.1 MG/KG; X1

REACTIONS (3)
  - Wrong drug administered [None]
  - Toxicity to various agents [None]
  - Drug dispensing error [None]
